FAERS Safety Report 13433593 (Version 1)
Quarter: 2017Q2

REPORT INFORMATION
  Report Type: Spontaneous
  Country: US (occurrence: US)
  Receive Date: 20170412
  Receipt Date: 20170412
  Transmission Date: 20170830
  Serious: Yes (Other)
  Sender: FDA-Public Use
  Company Number: PHEH2017US009868

PATIENT
  Sex: Female
  Weight: 76.2 kg

DRUGS (3)
  1. IBRANCE [Suspect]
     Active Substance: PALBOCICLIB
     Indication: BREAST CANCER
     Dosage: 100 MG, 21 DAYS ON AND 7 DAYS OFF
     Route: 048
     Dates: start: 20160908
  2. PROTONIX [Suspect]
     Active Substance: PANTOPRAZOLE SODIUM
     Indication: BREAST CANCER
     Dosage: DELAYED RELEASE
     Route: 065
     Dates: start: 20140106
  3. FEMARA [Suspect]
     Active Substance: LETROZOLE
     Indication: BREAST CANCER
     Dosage: 2.5 MG, QD
     Route: 048
     Dates: start: 20160811

REACTIONS (7)
  - Leukopenia [Unknown]
  - Nodule [Recovering/Resolving]
  - Dyspnoea [Unknown]
  - Breast cancer recurrent [Unknown]
  - Pleural effusion [Unknown]
  - Macule [Unknown]
  - Blood pressure systolic increased [Unknown]
